FAERS Safety Report 6566571-4 (Version None)
Quarter: 2010Q1

REPORT INFORMATION
  Report Type: 
  Country: None (occurrence: None)
  Receive Date: 20100202
  Receipt Date: 20100121
  Transmission Date: 20100710
  Serious: Yes (Other)
  Sender: FDA-Public Use
  Company Number: JP-PFIZER INC-2009311862

PATIENT
  Age: 33 Year
  Sex: Female
  Weight: 40 kg

DRUGS (13)
  1. ZYVOX [Suspect]
     Indication: WOUND INFECTION STAPHYLOCOCCAL
     Dosage: 600 MG, 2X/DAY
     Route: 048
     Dates: start: 20091019, end: 20091023
  2. ZYVOX [Interacting]
     Dosage: 600 MG, 1X/DAY
     Route: 048
     Dates: start: 20091025, end: 20091112
  3. WARFARIN POTASSIUM [Interacting]
     Indication: THROMBOSIS PROPHYLAXIS
     Dosage: 3 MG, DAILY
     Route: 048
     Dates: start: 20091016, end: 20091001
  4. WARFARIN POTASSIUM [Interacting]
     Dosage: 2.75 MG, 1X/DAY
     Route: 048
     Dates: start: 20091021, end: 20091024
  5. WARFARIN POTASSIUM [Interacting]
     Dosage: 2.5 MG, 1X/DAY
     Route: 048
     Dates: start: 20091028
  6. WARFARIN POTASSIUM [Interacting]
     Dosage: 2.25 MG/DAY
     Route: 048
     Dates: start: 20091106, end: 20091101
  7. WARFARIN POTASSIUM [Interacting]
     Dosage: 2.75 MG, 1X/DAY
     Dates: start: 20091118
  8. GASTER D [Concomitant]
     Dosage: UNK
     Route: 048
  9. CINAL [Concomitant]
     Dosage: UNK
     Route: 048
  10. IPD [Concomitant]
     Dosage: UNK
     Route: 048
  11. LASIX [Concomitant]
     Dosage: UNK
     Route: 048
  12. BROTIZOLAM [Concomitant]
     Dosage: UNK
     Route: 048
  13. LOXONIN [Concomitant]
     Dosage: UNK
     Route: 048

REACTIONS (7)
  - DECREASED APPETITE [None]
  - DIARRHOEA [None]
  - DIZZINESS [None]
  - DRUG INTERACTION [None]
  - INTERNATIONAL NORMALISED RATIO INCREASED [None]
  - TINNITUS [None]
  - WOUND INFECTION STAPHYLOCOCCAL [None]
